FAERS Safety Report 7281304-4 (Version None)
Quarter: 2010Q4

REPORT INFORMATION
  Report Type: 
  Country: None (occurrence: None)
  Receive Date: 20101221
  Receipt Date: 20100415
  Transmission Date: 20110411
  Serious: Yes (Other)
  Sender: FDA-Public Use
  Company Number: WAES 1004USA02487

PATIENT
  Sex: Female

DRUGS (4)
  1. JANUVIA [Suspect]
     Indication: TYPE 2 DIABETES MELLITUS
     Dosage: 100 MG/PO
     Route: 048
  2. ACTOS [Concomitant]
  3. METFORMIN HCL [Concomitant]
  4. STATIN [Concomitant]

REACTIONS (1)
  - PANCREATITIS [None]
